FAERS Safety Report 8788519 (Version 1)
Quarter: 2012Q4

REPORT INFORMATION
  Report Type: 
  Country: US (occurrence: US)
  Receive Date: 20120914
  Receipt Date: 20120914
  Transmission Date: 20130627
  Serious: No
  Sender: FDA-Public Use
  Company Number: US-VERTEX PHARMACEUTICAL INC.-AE-2012-011079

PATIENT
  Age: 47 None
  Sex: Female
  Weight: 78 kg

DRUGS (8)
  1. VX-950 [Suspect]
     Indication: HEPATITIS C
     Dosage: 750 mg, tid
     Route: 048
     Dates: start: 2012
  2. RIBASPHERE [Concomitant]
     Indication: HEPATITIS C
     Dosage: 1000 mg, qd
     Route: 048
     Dates: start: 2012
  3. RIBASPHERE [Concomitant]
     Dosage: 200 mg, qd
     Dates: start: 2012
  4. PEGINTRON [Concomitant]
     Indication: HEPATITIS C
     Dosage: 120 ?g, weekly
     Route: 058
     Dates: start: 2012
  5. DICLOXACILLIN [Concomitant]
     Indication: INFECTION
  6. CITALOPRAM [Concomitant]
     Dosage: 40 mg, UNK
     Route: 048
  7. LEVOTHYROXINE [Concomitant]
     Dosage: 88 ?g, qd
     Route: 048
  8. ADVIL                              /00044201/ [Concomitant]
     Dosage: 200 mg, UNK
     Route: 048

REACTIONS (12)
  - Blood count abnormal [Unknown]
  - Vision blurred [Unknown]
  - Dizziness [Unknown]
  - Anxiety [Unknown]
  - Headache [Unknown]
  - Weight decreased [Unknown]
  - Injection site pain [Unknown]
  - Fatigue [Unknown]
  - Anorectal discomfort [Unknown]
  - Diarrhoea [Unknown]
  - Vomiting [Unknown]
  - Nausea [Unknown]
